FAERS Safety Report 10153185 (Version 2)
Quarter: 2015Q4

REPORT INFORMATION
  Report Type: Spontaneous
  Country: US (occurrence: US)
  Receive Date: 20140505
  Receipt Date: 20151124
  Transmission Date: 20160304
  Serious: Yes (Hospitalization, Other)
  Sender: FDA-Public Use
  Company Number: US-BAYER-2014-064691

PATIENT
  Age: 27 Year
  Sex: Female
  Weight: 77.1 kg

DRUGS (11)
  1. CIPROFLOXACIN. [Concomitant]
     Active Substance: CIPROFLOXACIN
     Dosage: 500 MG,TABLETS, TAKE 1 TABLET EVERY 12 HOURS FOR 10 DAYS
     Route: 048
  2. FLUCONAZOLE. [Concomitant]
     Active Substance: FLUCONAZOLE
     Dosage: 150 MG, TABLETS, TAKE 1 TABLET NOW AND REPEAT IN 3 DAYS
     Route: 048
  3. MORPHINE [Concomitant]
     Active Substance: MORPHINE
  4. BEYAZ [Suspect]
     Active Substance: DROSPIRENONE\ETHINYL ESTRADIOL\LEVOMEFOLATE CALCIUM
  5. FLUTICASONE [Concomitant]
     Active Substance: FLUTICASONE\FLUTICASONE PROPIONATE
     Dosage: 2 PUFFS EVERY MORNING
     Route: 045
  6. ZITHROMAX [Concomitant]
     Active Substance: AZITHROMYCIN DIHYDRATE
     Dosage: 250 MG, TABLETS, TAKE TWO TABLES AT ONCE TODAY THEN ONE TABLET FOR FOUR DAYS
  7. HYDROMORPHONE [Concomitant]
     Active Substance: HYDROMORPHONE
  8. ADDERALL XR [Concomitant]
     Active Substance: AMPHETAMINE ASPARTATE\AMPHETAMINE SULFATE\DEXTROAMPHETAMINE SACCHARATE\DEXTROAMPHETAMINE SULFATE
     Dosage: 20 MG, UNK
     Route: 048
  9. LEXAPRO [Concomitant]
     Active Substance: ESCITALOPRAM OXALATE
  10. ONDANSETRON [Concomitant]
     Active Substance: ONDANSETRON
  11. PANTOPRAZOLE [Concomitant]
     Active Substance: PANTOPRAZOLE SODIUM

REACTIONS (2)
  - Embolism arterial [None]
  - Mesenteric artery thrombosis [None]

NARRATIVE: CASE EVENT DATE: 201208
